FAERS Safety Report 24594309 (Version 1)
Quarter: 2024Q4

REPORT INFORMATION
  Report Type: Spontaneous
  Country: US (occurrence: None)
  Receive Date: 20241108
  Receipt Date: 20241108
  Transmission Date: 20250114
  Serious: Yes (Death)
  Sender: Public
  Company Number: None

PATIENT
  Age: 85 Year
  Sex: Male
  Weight: 86.64 kg

DRUGS (8)
  1. CALQUENCE [Suspect]
     Active Substance: ACALABRUTINIB
     Indication: Leukaemia
     Dosage: FREQUENCY : DAILY;?
     Route: 048
     Dates: start: 20241009, end: 20241105
  2. CITALOPRAM [Concomitant]
     Active Substance: CITALOPRAM
  3. FOLIC ACID [Concomitant]
     Active Substance: FOLIC ACID
  4. MEMANTINE [Concomitant]
     Active Substance: MEMANTINE
  5. PRAVASTATIN [Concomitant]
  6. AMLODIPINE [Concomitant]
     Active Substance: AMLODIPINE BESYLATE
  7. LOSARTAN [Concomitant]
     Active Substance: LOSARTAN
  8. PREDNISONE [Concomitant]
     Active Substance: PREDNISONE

REACTIONS (1)
  - Death [None]

NARRATIVE: CASE EVENT DATE: 20241105
